FAERS Safety Report 6706476-9 (Version None)
Quarter: 2010Q2

REPORT INFORMATION
  Report Type: 
  Country: None (occurrence: None)
  Receive Date: 20100428
  Receipt Date: 20100420
  Transmission Date: 20101027
  Serious: Yes (Other)
  Sender: FDA-Public Use
  Company Number: 20108516

PATIENT
  Sex: Male

DRUGS (1)
  1. LIORESAL [Suspect]
     Indication: MUSCLE SPASTICITY
     Dosage: INTRATHECAL
     Route: 037

REACTIONS (6)
  - COMPLICATION OF DEVICE REMOVAL [None]
  - IMPAIRED HEALING [None]
  - MEDICAL DEVICE CHANGE [None]
  - MEDICAL DEVICE COMPLICATION [None]
  - MEDICAL DEVICE REMOVAL [None]
  - MUSCLE TIGHTNESS [None]
